FAERS Safety Report 9842142 (Version 1)
Quarter: 2013Q4

REPORT INFORMATION
  Report Type: Spontaneous
  Country: US (occurrence: None)
  Receive Date: 20131219
  Receipt Date: 20131219
  Transmission Date: 20140711
  Serious: Yes (Hospitalization)
  Sender: FDA-Public Use
  Company Number: 163-20785-13061184

PATIENT
  Age: 8 Year
  Sex: Male

DRUGS (1)
  1. THALOMID (THALIDOMIDE) (100 MILLIGRAM, CAPSULES) [Suspect]
     Indication: BRAIN NEOPLASM MALIGNANT
     Dosage: 1 IN 1 D
     Route: 048
     Dates: start: 201304

REACTIONS (3)
  - Brain neoplasm malignant [None]
  - Disease progression [None]
  - Treatment failure [None]
